FAERS Safety Report 10302247 (Version 1)
Quarter: 2014Q3

REPORT INFORMATION
  Report Type: Spontaneous
  Country: US (occurrence: None)
  Receive Date: 20140709
  Receipt Date: 20140709
  Transmission Date: 20150326
  Serious: Yes (Death)
  Sender: FDA-Public Use
  Company Number: ADE14-022

PATIENT
  Age: 2 Day
  Sex: Male
  Weight: .81 kg

DRUGS (5)
  1. FAT EMULSION NOS [Concomitant]
     Active Substance: EGG PHOSPHOLIPIDS\SAFFLOWER OIL\SOYBEAN OIL
  2. GENTAMICIN [Concomitant]
     Active Substance: GENTAMICIN
  3. CAFFEINE. [Concomitant]
     Active Substance: CAFFEINE
  4. HEPARIN SODIUM INJECTION [Suspect]
     Active Substance: HEPARIN SODIUM
     Indication: ANTICOAGULANT THERAPY
     Dosage: NOT SPECIFIED IV
     Route: 042
     Dates: start: 20140630, end: 20140701
  5. AMPICILLIN [Concomitant]
     Active Substance: AMPICILLIN

REACTIONS (1)
  - Pulmonary haemorrhage [None]

NARRATIVE: CASE EVENT DATE: 20140701
